FAERS Safety Report 15121740 (Version 2)
Quarter: 2018Q3

REPORT INFORMATION
  Report Type: Spontaneous
  Country: US (occurrence: US)
  Receive Date: 20180709
  Receipt Date: 20180711
  Transmission Date: 20181010
  Serious: Yes (Other)
  Sender: FDA-Public Use
  Company Number: US-PFIZER INC-2018273778

PATIENT
  Age: 69 Year
  Sex: Male

DRUGS (11)
  1. TERAZOSIN [Concomitant]
     Active Substance: TERAZOSIN\TERAZOSIN HYDROCHLORIDE
     Dosage: UNK, TAKING FOR MORE THAN TWO MONTHS
  2. LEVOTHYROXINE. [Concomitant]
     Active Substance: LEVOTHYROXINE
     Dosage: UNK, TAKING FOR MORE THAN TWO MONTHS
  3. UBIQUINONE [Concomitant]
     Active Substance: UBIDECARENONE
     Dosage: UNK, TAKING FOR MORE THAN TWO MONTHS
  4. COLCHICINE. [Concomitant]
     Active Substance: COLCHICINE
     Dosage: UNK, TAKING FOR MORE THAN TWO MONTHS
  5. TADALAFIL [Concomitant]
     Active Substance: TADALAFIL
     Dosage: UNK, TAKING FOR MORE THAN TWO MONTHS
  6. AZELASTINE. [Concomitant]
     Active Substance: AZELASTINE HYDROCHLORIDE
     Dosage: UNK, TAKING FOR MORE THAN TWO MONTHS
     Route: 045
  7. IBUPROFEN. [Suspect]
     Active Substance: IBUPROFEN
     Indication: HEADACHE
     Dosage: UNK, DAILY
     Dates: start: 201412
  8. IBUPROFEN. [Suspect]
     Active Substance: IBUPROFEN
     Dosage: UNK
  9. FERROUS SULFATE. [Concomitant]
     Active Substance: FERROUS SULFATE
     Dosage: UNK, TAKING FOR MORE THAN TWO MONTHS
  10. LANSOPRAZOLE. [Concomitant]
     Active Substance: LANSOPRAZOLE
     Dosage: UNK, TAKING FOR MORE THAN TWO MONTHS
  11. FLUTICASONE PROPIONATE. [Concomitant]
     Active Substance: FLUTICASONE PROPIONATE
     Dosage: UNK, TAKING FOR MORE THAN TWO MONTHS
     Route: 045

REACTIONS (3)
  - Intentional product misuse [Unknown]
  - Gastrointestinal haemorrhage [Unknown]
  - Anaemia [Recovering/Resolving]

NARRATIVE: CASE EVENT DATE: 20150120
